FAERS Safety Report 6266258-1 (Version None)
Quarter: 2009Q3

REPORT INFORMATION
  Report Type: 
  Country: None (occurrence: None)
  Receive Date: 20090713
  Receipt Date: 20090630
  Transmission Date: 20100115
  Serious: Yes (Death, Hospitalization)
  Sender: FDA-Public Use
  Company Number: US-CELGENEUS-163-21880-09070748

PATIENT
  Sex: Male
  Weight: 86.26 kg

DRUGS (2)
  1. REVLIMID [Suspect]
     Route: 048
     Dates: start: 20090615, end: 20090703
  2. DECITABINE [Suspect]
     Route: 051
     Dates: start: 20090615, end: 20090619

REACTIONS (7)
  - ASPIRATION [None]
  - CONVULSION [None]
  - DEATH [None]
  - DYSPNOEA [None]
  - FALL [None]
  - HYPOXIA [None]
  - INTERSTITIAL LUNG DISEASE [None]
